FAERS Safety Report 12579282 (Version 1)
Quarter: 2016Q3

REPORT INFORMATION
  Report Type: Spontaneous
  Country: US (occurrence: US)
  Receive Date: 20160721
  Receipt Date: 20160721
  Transmission Date: 20161109
  Serious: Yes (Hospitalization)
  Sender: FDA-Public Use
  Company Number: US-B.I. PHARMACEUTICALS,INC./RIDGEFIELD-2016-BI-46799BP

PATIENT
  Age: 69 Year
  Sex: Female

DRUGS (10)
  1. SPIRIVA [Suspect]
     Active Substance: TIOTROPIUM BROMIDE MONOHYDRATE
     Indication: CHRONIC OBSTRUCTIVE PULMONARY DISEASE
     Dosage: 18 MCG
     Route: 055
  2. LISINOPRIL. [Concomitant]
     Active Substance: LISINOPRIL
     Indication: HYPERTENSION
     Dosage: 20 MG
     Route: 048
  3. GABAPENTIN. [Concomitant]
     Active Substance: GABAPENTIN
     Indication: NEURALGIA
     Dosage: 600 MG
     Route: 048
  4. NOVOLOG [Concomitant]
     Active Substance: INSULIN ASPART
     Indication: DIABETES MELLITUS
     Dosage: STRENGTH: 70/30 MG; DOSE PER APPLICATION: 35 UNIT IN MORNING;40 UNITS IN AFTERNOON
     Route: 058
  5. XANAX [Concomitant]
     Active Substance: ALPRAZOLAM
     Indication: ANXIETY
     Dosage: STRENGTH: 1 MG; DOSE PER APPLICATION: 1/4  OF A 1 MG TABLET; DAILY DOSE: 3/4 OF A 1 MG TABLET
     Route: 048
  6. SEREVENT DISKUS [Concomitant]
     Active Substance: SALMETEROL XINAFOATE
     Indication: CHRONIC OBSTRUCTIVE PULMONARY DISEASE
     Dosage: 100 MCG
     Route: 055
  7. LASIX [Concomitant]
     Active Substance: FUROSEMIDE
     Indication: PRODUCT USED FOR UNKNOWN INDICATION
     Route: 048
  8. NEXIUM [Concomitant]
     Active Substance: ESOMEPRAZOLE MAGNESIUM
     Indication: GASTROOESOPHAGEAL REFLUX DISEASE
     Dosage: 40 MG
     Route: 048
  9. COREG [Concomitant]
     Active Substance: CARVEDILOL
     Indication: CARDIOMYOPATHY
     Dosage: 2.5 MG
     Route: 048
  10. PLAVIX [Concomitant]
     Active Substance: CLOPIDOGREL BISULFATE
     Indication: TRANSPLANT DYSFUNCTION
     Dosage: 75 MG
     Route: 048

REACTIONS (5)
  - Dizziness [Recovered/Resolved]
  - Dyspnoea [Recovered/Resolved]
  - Fatigue [Not Recovered/Not Resolved]
  - Implant site infection [Not Recovered/Not Resolved]
  - Pyrexia [Recovered/Resolved]

NARRATIVE: CASE EVENT DATE: 2014
